FAERS Safety Report 5712540-3 (Version None)
Quarter: 2008Q2

REPORT INFORMATION
  Report Type: 
  Country: None (occurrence: None)
  Receive Date: 20080418
  Receipt Date: 20080404
  Transmission Date: 20081010
  Serious: Yes (Other)
  Sender: FDA-Public Use
  Company Number: CHPA2008CA05845

PATIENT
  Age: 60 Year
  Sex: Male

DRUGS (2)
  1. OTRIVIN [Suspect]
     Indication: NASAL CONGESTION
     Dosage: QHS, NASAL
     Route: 045
  2. SYMBICORT [Concomitant]

REACTIONS (2)
  - DRUG DEPENDENCE [None]
  - INSOMNIA [None]
